FAERS Safety Report 9687533 (Version 1)
Quarter: 2013Q4

REPORT INFORMATION
  Report Type: Report from Study
  Country: CA (occurrence: CA)
  Receive Date: 20131114
  Receipt Date: 20131114
  Transmission Date: 20140711
  Serious: Yes (Other)
  Sender: FDA-Public Use
  Company Number: CA-JNJFOC-20131105209

PATIENT
  Age: 24 Year
  Sex: Female
  Weight: 87.6 kg

DRUGS (8)
  1. REMICADE [Suspect]
     Indication: HIDRADENITIS
     Dosage: 9TH INFUSION
     Route: 042
     Dates: start: 20131106
  2. REMICADE [Suspect]
     Indication: HIDRADENITIS
     Route: 042
     Dates: start: 20130925
  3. REMICADE [Suspect]
     Indication: HIDRADENITIS
     Route: 042
     Dates: start: 20121214
  4. METFORMIN [Concomitant]
     Route: 065
  5. GRAVOL [Concomitant]
     Route: 065
  6. ATIVAN [Concomitant]
     Route: 065
  7. METAMUCIL [Concomitant]
     Route: 065
  8. CIPRALEX [Concomitant]
     Route: 065

REACTIONS (2)
  - Ovarian cyst [Recovering/Resolving]
  - Off label use [Not Recovered/Not Resolved]
